FAERS Safety Report 12457412 (Version 1)
Quarter: 2016Q2

REPORT INFORMATION
  Report Type: Other
  Country: GB (occurrence: GB)
  Receive Date: 20160610
  Receipt Date: 20160610
  Transmission Date: 20160815
  Serious: Yes (Other)
  Sender: FDA-Public Use
  Company Number: GB-MYLANLABS-2016M1023637

PATIENT

DRUGS (1)
  1. OMEPRAZOLE. [Suspect]
     Active Substance: OMEPRAZOLE
     Indication: REFLUX GASTRITIS
     Dosage: 20 MG, BID
     Route: 048
     Dates: start: 20160518

REACTIONS (2)
  - Hypertension [Not Recovered/Not Resolved]
  - Pulse pressure increased [Not Recovered/Not Resolved]

NARRATIVE: CASE EVENT DATE: 20160519
